FAERS Safety Report 14910427 (Version 1)
Quarter: 2018Q2

REPORT INFORMATION
  Report Type: Spontaneous
  Country: US (occurrence: US)
  Receive Date: 20180517
  Receipt Date: 20180517
  Transmission Date: 20180711
  Serious: No
  Sender: FDA-Public Use
  Company Number: US-009507513-1805USA006151

PATIENT
  Sex: Female
  Weight: 72.56 kg

DRUGS (1)
  1. NEXPLANON [Suspect]
     Active Substance: ETONOGESTREL
     Indication: CONTRACEPTION
     Dosage: IMPLANT EVERY 3 YEARS
     Dates: start: 20150107, end: 20180115

REACTIONS (4)
  - Vaginal discharge [Unknown]
  - Incorrect drug administration duration [Unknown]
  - Hypomenorrhoea [Unknown]
  - Menstruation irregular [Unknown]

NARRATIVE: CASE EVENT DATE: 2018
